FAERS Safety Report 8305926 (Version 4)
Quarter: 2013Q1

REPORT INFORMATION
  Report Type: Report from Study
  Country: GB (occurrence: GB)
  Receive Date: 20111221
  Receipt Date: 20130313
  Transmission Date: 20140127
  Serious: Yes (Death, Life-Threatening, Hospitalization)
  Sender: FDA-Public Use
  Company Number: GB-CELGENEUS-167-21880-11122237

PATIENT
  Age: 49 Year
  Sex: Female

DRUGS (7)
  1. REVLIMID [Suspect]
     Indication: PLASMA CELL MYELOMA
     Route: 048
     Dates: start: 20111123, end: 20111208
  2. REVLIMID [Suspect]
     Route: 048
     Dates: start: 20111208, end: 20111209
  3. CYCLOPHOSPHAMID [Suspect]
     Indication: PLASMA CELL MYELOMA
     Route: 048
     Dates: start: 20111123, end: 20111130
  4. CYCLOPHOSPHAMID [Suspect]
     Route: 048
     Dates: start: 20111130, end: 20111211
  5. DEXAMETHASONE [Suspect]
     Indication: PLASMA CELL MYELOMA
     Route: 048
     Dates: start: 20111123, end: 20111207
  6. DEXAMETHASONE [Suspect]
     Route: 048
     Dates: start: 20111207, end: 20111211
  7. PAMIDRONATE [Concomitant]
     Indication: HYPERCALCAEMIA
     Route: 041

REACTIONS (1)
  - Hepatitis B [Fatal]
